FAERS Safety Report 4950402-X (Version None)
Quarter: 2006Q1

REPORT INFORMATION
  Report Type: 
  Country: None (occurrence: None)
  Receive Date: 20060315
  Receipt Date: 20060302
  Transmission Date: 20060701
  Serious: Yes (Hospitalization)
  Sender: FDA-Public Use
  Company Number: 2006030746

PATIENT
  Age: 75 Year
  Sex: Female
  Weight: 68 kg

DRUGS (11)
  1. SUTENT [Suspect]
     Indication: METASTATIC RENAL CELL CARCINOMA
     Dosage: 50 MG (50 MG, 1 IN 1 D) ORAL
     Route: 048
     Dates: start: 20060210, end: 20060228
  2. LOSARTAN POTASSIUM [Concomitant]
  3. MEDROXYPROGESTERONE [Concomitant]
  4. OMEPRAZOLE [Concomitant]
  5. SODIUM POLYSTYRENE SULFONATE [Concomitant]
  6. ALLOPURINOL [Concomitant]
  7. CALCIUM GLUCONATE [Concomitant]
  8. FUROSEMIDE [Concomitant]
  9. INSULIN RAPID ^PARANOVA^ (INSULIN) [Concomitant]
  10. SODIUM BICARBONATE [Concomitant]
  11. CLONIDINE [Concomitant]

REACTIONS (6)
  - ANOREXIA [None]
  - ASTHENIA [None]
  - CONFUSIONAL STATE [None]
  - HYPERTENSION [None]
  - PYREXIA [None]
  - RENAL FAILURE [None]
